FAERS Safety Report 5007634-4 (Version None)
Quarter: 2006Q2

REPORT INFORMATION
  Report Type: 
  Country: None (occurrence: None)
  Receive Date: 20060405
  Receipt Date: 20051014
  Transmission Date: 20061013
  Serious: Yes (Other)
  Sender: FDA-Public Use
  Company Number: PHEH2005US09110

PATIENT
  Age: 50 Year
  Sex: Female

DRUGS (1)
  1. VIVELLE-DOT [Suspect]
     Indication: HYSTERECTOMY
     Dosage: 1 MG, 2X A WEEK, TRANSDERMAL
     Route: 062
     Dates: start: 20050718

REACTIONS (15)
  - ABDOMINAL DISTENSION [None]
  - ABDOMINAL PAIN [None]
  - ANXIETY [None]
  - BLOOD PRESSURE FLUCTUATION [None]
  - BREAST TENDERNESS [None]
  - DEMENTIA [None]
  - FATIGUE [None]
  - HEADACHE [None]
  - HEMIPARESIS [None]
  - HYPOAESTHESIA [None]
  - MIGRAINE [None]
  - MOVEMENT DISORDER [None]
  - VAGINAL HAEMORRHAGE [None]
  - VISION BLURRED [None]
  - WEIGHT FLUCTUATION [None]
